FAERS Safety Report 23234321 (Version 1)
Quarter: 2023Q4

REPORT INFORMATION
  Report Type: Spontaneous
  Country: US (occurrence: US)
  Receive Date: 20231128
  Receipt Date: 20231128
  Transmission Date: 20240109
  Serious: Yes (Other)
  Sender: FDA-Public Use
  Company Number: US-009507513-2311USA007949

PATIENT
  Age: 43 Year
  Sex: Female

DRUGS (3)
  1. KEYTRUDA [Suspect]
     Active Substance: PEMBROLIZUMAB
     Indication: Adrenal gland cancer
     Dosage: UNK
  2. MITOTANE [Concomitant]
     Active Substance: MITOTANE
     Dosage: 500 MILLIGRAM, QID
  3. HYDROCORTISONE [Concomitant]
     Active Substance: HYDROCORTISONE
     Dosage: 180 MILLIGRAM, QID

REACTIONS (1)
  - Immune-mediated hepatic disorder [Recovering/Resolving]
